FAERS Safety Report 20520610 (Version 1)
Quarter: 2022Q1

REPORT INFORMATION
  Report Type: Spontaneous
  Country: AR (occurrence: None)
  Receive Date: 20220225
  Receipt Date: 20220225
  Transmission Date: 20220424
  Serious: Yes (Other)
  Sender: FDA-Public Use
  Company Number: AR-Merck Healthcare KGaA-9301467

PATIENT
  Age: 36 Year
  Sex: Female

DRUGS (4)
  1. MAVENCLAD [Suspect]
     Active Substance: CLADRIBINE
     Indication: Relapsing-remitting multiple sclerosis
     Dosage: YEAR ONE WEEK ONE THERAPY.
     Dates: start: 20181023
  2. MAVENCLAD [Suspect]
     Active Substance: CLADRIBINE
     Dosage: YEAR ONE WEEK FIVE THERAPY.
     Dates: start: 20181121
  3. MAVENCLAD [Suspect]
     Active Substance: CLADRIBINE
     Dosage: YEAR TWO WEEK ONE THERAPY.
     Dates: start: 20191012
  4. MAVENCLAD [Suspect]
     Active Substance: CLADRIBINE
     Dosage: YEAR TWO WEEK FIVE THERAPY.
     Dates: start: 20191109

REACTIONS (2)
  - Optic neuritis [Unknown]
  - Multiple sclerosis [Unknown]

NARRATIVE: CASE EVENT DATE: 20220101
